FAERS Safety Report 7068977-6 (Version None)
Quarter: 2010Q4

REPORT INFORMATION
  Report Type: 
  Country: None (occurrence: None)
  Receive Date: 20101028
  Receipt Date: 20100804
  Transmission Date: 20110411
  Serious: No
  Sender: FDA-Public Use
  Company Number: US-MYLANLABS-2010S1014197

PATIENT
  Age: 49 Year
  Sex: Female
  Weight: 61.24 kg

DRUGS (2)
  1. DIAZEPAM [Suspect]
     Indication: DYSMENORRHOEA
     Route: 048
     Dates: start: 20090801
  2. TRAMADOL HCL [Concomitant]
     Indication: DYSMENORRHOEA
     Route: 048
     Dates: start: 20090801

REACTIONS (1)
  - DRUG SCREEN FALSE POSITIVE [None]
